FAERS Safety Report 9837851 (Version 3)
Quarter: 2014Q1

REPORT INFORMATION
  Report Type: Spontaneous
  Country: US (occurrence: US)
  Receive Date: 20140123
  Receipt Date: 20140326
  Transmission Date: 20141002
  Serious: Yes (Other)
  Sender: FDA-Public Use
  Company Number: US-ALLERGAN-1400645US

PATIENT
  Age: 76 Year
  Sex: Female
  Weight: 72.56 kg

DRUGS (13)
  1. LUMIGAN 0.01% [Suspect]
     Indication: GLAUCOMA
     Dosage: 1 DROP IN EACH EYE AT NIGHT
     Route: 047
     Dates: start: 20130113, end: 201401
  2. COMBIGAN[R] [Suspect]
     Indication: GLAUCOMA
     Dosage: 1 DROP IN EACH EYE TWICE DAILY
     Route: 047
     Dates: start: 201307
  3. OXYBUTYNIN [Concomitant]
  4. TRAZODONE [Concomitant]
  5. SERTRALINE [Concomitant]
  6. LEVOTHYROXINE [Concomitant]
  7. AMLODIPINE [Concomitant]
  8. CLOPIDOGREL [Concomitant]
  9. OMEPRAZOLE [Concomitant]
  10. CARBIDOPA/LEVODOPA [Concomitant]
  11. ENALAPRIL [Concomitant]
  12. ATORVASTATIN [Concomitant]
  13. CLONIDINE [Concomitant]

REACTIONS (8)
  - Visual acuity reduced [Unknown]
  - Cataract [Unknown]
  - Cataract [Unknown]
  - Eye disorder [Unknown]
  - Headache [Recovered/Resolved]
  - Headache [Recovered/Resolved]
  - Dry eye [Not Recovered/Not Resolved]
  - Eye pain [Not Recovered/Not Resolved]
